FAERS Safety Report 5564075-9 (Version None)
Quarter: 2007Q4

REPORT INFORMATION
  Report Type: 
  Country: None (occurrence: None)
  Receive Date: 20071217
  Receipt Date: 20071203
  Transmission Date: 20080405
  Serious: Yes (Hospitalization)
  Sender: FDA-Public Use
  Company Number: GB-RANBAXY-2007RR-11827

PATIENT

DRUGS (10)
  1. FUROSEMIDE TABLETS BP 40MG [Suspect]
     Indication: FLUID RETENTION
     Dosage: UNK
     Route: 048
     Dates: end: 20071107
  2. SPIRONOLACTONE [Suspect]
     Dosage: UNK
     Route: 048
     Dates: end: 20071107
  3. ALENDRONIC ACID 10MG TABLETS [Concomitant]
  4. ASPIRIN TABLETS BP 300MG [Concomitant]
  5. ISOSORBIDE MONONITRATE [Concomitant]
  6. PREDNISOLONE [Concomitant]
  7. QUININE SULPHATE TABLETS [Concomitant]
  8. SIMVASTATIN 10MG TABLETS [Concomitant]
  9. TEMAZEPAM [Concomitant]
  10. VERAPAMIL TABLETS BP 120MG [Concomitant]

REACTIONS (1)
  - HYPONATRAEMIA [None]
